FAERS Safety Report 17976147 (Version 8)
Quarter: 2020Q4

REPORT INFORMATION
  Report Type: Report from Study
  Country: US (occurrence: US)
  Receive Date: 20200702
  Receipt Date: 20201216
  Transmission Date: 20210113
  Serious: Yes (Other)
  Sender: FDA-Public Use
  Company Number: NVSC2020US185930

PATIENT
  Age: 50 Year
  Sex: Female

DRUGS (3)
  1. COSENTYX [Suspect]
     Active Substance: SECUKINUMAB
     Indication: PSORIATIC ARTHROPATHY
     Dosage: 300 MG, QW (ONCE WEEKLY FOR 5 WEEKS)
     Route: 058
     Dates: start: 20200413
  2. COSENTYX [Suspect]
     Active Substance: SECUKINUMAB
     Dosage: 300 MG, Q4W (ONCE EVERY 4 WEEKS)
     Route: 058
  3. METHOTREXATE. [Suspect]
     Active Substance: METHOTREXATE
     Indication: PRODUCT USED FOR UNKNOWN INDICATION
     Dosage: UNK
     Route: 065

REACTIONS (14)
  - Inflammatory marker increased [Unknown]
  - Red blood cell sedimentation rate increased [Unknown]
  - Feeling abnormal [Unknown]
  - Muscle spasms [Unknown]
  - Pneumonia [Unknown]
  - Psoriatic arthropathy [Unknown]
  - Swelling [Unknown]
  - Dehydration [Unknown]
  - Illness [Unknown]
  - C-reactive protein increased [Unknown]
  - Asthenia [Unknown]
  - Pain [Unknown]
  - Blood alkaline phosphatase increased [Unknown]
  - COVID-19 [Not Recovered/Not Resolved]

NARRATIVE: CASE EVENT DATE: 202004
